APPROVED DRUG PRODUCT: CABERGOLINE
Active Ingredient: CABERGOLINE
Strength: 0.5MG
Dosage Form/Route: TABLET;ORAL
Application: A077750 | Product #001 | TE Code: AB
Applicant: IVAX PHARMACEUTICALS INC SUB TEVA PHARMACEUTICALS USA
Approved: Mar 7, 2007 | RLD: No | RS: No | Type: RX